FAERS Safety Report 4351756-8 (Version None)
Quarter: 2004Q2

REPORT INFORMATION
  Report Type: 
  Country: None (occurrence: None)
  Receive Date: 20040503
  Receipt Date: 20031029
  Transmission Date: 20050107
  Serious: Yes (Death, Hospitalization)
  Sender: FDA-Public Use
  Company Number: US-GLAXOSMITHKLINE-B0313822A

PATIENT
  Age: 42 Year
  Sex: Female

DRUGS (3)
  1. METHADONE HCL [Suspect]
     Route: 048
  2. DIAZEPAM [Suspect]
     Route: 048
  3. BUPROPION HCL [Suspect]
     Route: 048

REACTIONS (3)
  - ACCIDENTAL OVERDOSE [None]
  - CARDIO-RESPIRATORY ARREST [None]
  - DEATH [None]
